FAERS Safety Report 8374094-5 (Version None)
Quarter: 2012Q2

REPORT INFORMATION
  Report Type: 
  Country: None (occurrence: None)
  Receive Date: 20120521
  Receipt Date: 20120514
  Transmission Date: 20120825
  Serious: Yes (Hospitalization, Other)
  Sender: FDA-Public Use
  Company Number: PHHO2010BR10678

PATIENT
  Sex: Male

DRUGS (3)
  1. PREDNISONE [Suspect]
     Dosage: 5 MG, QD
     Dates: start: 20080923
  2. BELATACEPT [Suspect]
     Indication: RENAL TRANSPLANT
     Dosage: 520 MG, UNK
     Route: 042
     Dates: start: 20080117
  3. MYCOPHENOLATE MOFETIL [Suspect]
     Indication: RENAL TRANSPLANT
     Dosage: 1080 MG, DAILY
     Route: 048
     Dates: start: 20080924

REACTIONS (4)
  - SQUAMOUS CELL CARCINOMA OF SKIN [None]
  - BASAL CELL CARCINOMA [None]
  - BOWEN'S DISEASE [None]
  - SKIN LESION [None]
